FAERS Safety Report 12297869 (Version 1)
Quarter: 2016Q2

REPORT INFORMATION
  Report Type: Spontaneous
  Country: CA (occurrence: CA)
  Receive Date: 20160422
  Receipt Date: 20160422
  Transmission Date: 20160815
  Serious: Yes (Other)
  Sender: FDA-Public Use
  Company Number: CA-PFIZER INC-2014334463

PATIENT
  Age: 59 Year
  Sex: Female

DRUGS (3)
  1. XELJANZ [Suspect]
     Active Substance: TOFACITINIB CITRATE
     Dosage: 5 MG, DAILY
     Route: 048
  2. SULFASALAZINE. [Concomitant]
     Active Substance: SULFASALAZINE
     Dosage: UNK
  3. XELJANZ [Suspect]
     Active Substance: TOFACITINIB CITRATE
     Indication: RHEUMATOID ARTHRITIS
     Dosage: 5 MG, 2X/DAY
     Route: 048
     Dates: start: 20140731, end: 2014

REACTIONS (7)
  - Sneezing [Not Recovered/Not Resolved]
  - Dizziness [Recovered/Resolved]
  - Sinusitis [Unknown]
  - Sinus disorder [Recovered/Resolved]
  - Ear discomfort [Recovered/Resolved]
  - Tooth abscess [Unknown]
  - Phobia of driving [Recovered/Resolved]

NARRATIVE: CASE EVENT DATE: 2014
